FAERS Safety Report 8330821-4 (Version None)
Quarter: 2012Q2

REPORT INFORMATION
  Report Type: 
  Country: None (occurrence: None)
  Receive Date: 20120502
  Receipt Date: 20120420
  Transmission Date: 20120825
  Serious: Yes (Hospitalization)
  Sender: FDA-Public Use
  Company Number: FR-ROCHE-1061567

PATIENT
  Age: 69 Year
  Sex: Female
  Weight: 88 kg

DRUGS (1)
  1. MIRCERA [Suspect]
     Indication: NEPHROGENIC ANAEMIA
     Dates: start: 20110704

REACTIONS (1)
  - CARDIAC FAILURE [None]
